FAERS Safety Report 6210731-9 (Version None)
Quarter: 2009Q2

REPORT INFORMATION
  Report Type: 
  Country: None (occurrence: None)
  Receive Date: 20090601
  Receipt Date: 20090520
  Transmission Date: 20091009
  Serious: Yes (Hospitalization)
  Sender: FDA-Public Use
  Company Number: AU-PFIZER INC-2009216158

PATIENT
  Age: 58 Year

DRUGS (27)
  1. IDARUBICIN HCL [Suspect]
     Indication: ACUTE MYELOID LEUKAEMIA
     Dosage: 18.9 MG, 1X/DAY FOR 3 DAYS
     Route: 042
     Dates: start: 20090331
  2. ETOPOSIDE [Suspect]
     Indication: ACUTE MYELOID LEUKAEMIA
     Dosage: 160 MG, 1X/DAY, FOR 7 DAYS
     Route: 042
     Dates: start: 20090331
  3. CYTARABINE [Suspect]
     Indication: ACUTE MYELOID LEUKAEMIA
     Dosage: 6.3 MG, 2X/DAY, FOR 7 DAYS
     Route: 042
     Dates: start: 20090331
  4. PEGFILGRASTIM [Suspect]
     Indication: ACUTE MYELOID LEUKAEMIA
     Dosage: 6 MG, SINGLE
     Route: 058
     Dates: start: 20090408
  5. FLUCONAZOLE [Concomitant]
     Indication: ANTIVIRAL TREATMENT
     Dosage: UNK
     Dates: start: 20090331, end: 20090418
  6. ACICLOVIR [Concomitant]
     Indication: ANTIVIRAL TREATMENT
     Dosage: UNK
     Dates: start: 20090331
  7. PARACETAMOL [Concomitant]
     Indication: PAIN
     Dosage: UNK
     Dates: start: 20090329, end: 20090426
  8. LORAZEPAM [Concomitant]
     Indication: ANXIETY
     Dates: start: 20090408, end: 20090417
  9. METOCLOPRAMIDE [Concomitant]
     Indication: NAUSEA
     Dosage: UNK
     Dates: start: 20090329, end: 20090413
  10. FENTANYL [Concomitant]
     Indication: PAIN
     Dates: start: 20090331
  11. TAZOCIN [Concomitant]
     Indication: INFECTION
     Dates: start: 20090408, end: 20090414
  12. GRANISETRON [Concomitant]
     Indication: NAUSEA
     Dates: start: 20090409, end: 20090427
  13. GENTAMICIN [Concomitant]
     Indication: INFECTION
     Dates: start: 20090409, end: 20090414
  14. ENDONE [Concomitant]
     Indication: PAIN
     Dates: start: 20090328, end: 20090331
  15. MORPHINE [Concomitant]
     Indication: PAIN
     Dates: start: 20090329, end: 20090331
  16. TEMAZEPAM [Concomitant]
     Indication: INSOMNIA
     Dates: start: 20090329, end: 20090407
  17. CEFTRIAXONE [Concomitant]
     Indication: INFECTION
     Dates: start: 20090328, end: 20090329
  18. METOPROLOL [Concomitant]
     Dates: start: 20090330, end: 20090403
  19. ALLOPURINOL [Concomitant]
     Indication: HYPERURICAEMIA
     Dates: start: 20090330, end: 20090405
  20. COLOXYL WITH SENNA [Concomitant]
     Indication: CONSTIPATION
     Dates: start: 20090330, end: 20090403
  21. MAGMIN [Concomitant]
     Indication: MINERAL SUPPLEMENTATION
     Dates: start: 20090330, end: 20090409
  22. BACTRIM [Concomitant]
     Indication: PROPHYLAXIS
     Dates: start: 20090402, end: 20090402
  23. PREDNISOLONE [Concomitant]
     Indication: PROPHYLAXIS
  24. GASTRO-STOP [Concomitant]
     Indication: DIARRHOEA
     Dates: start: 20090406, end: 20090406
  25. MULTI-VITAMINS [Concomitant]
     Indication: PROPHYLAXIS
     Dates: start: 20090403, end: 20090406
  26. GLUCOSAMINE [Concomitant]
     Indication: ANTIINFLAMMATORY THERAPY
     Dates: start: 20090404, end: 20090406
  27. CLEXANE [Concomitant]
     Indication: THROMBOSIS PROPHYLAXIS
     Dates: start: 20090403, end: 20090404

REACTIONS (3)
  - FEBRILE NEUTROPENIA [None]
  - NEUTROPENIC COLITIS [None]
  - SMALL INTESTINAL OBSTRUCTION [None]
